FAERS Safety Report 19373947 (Version 2)
Quarter: 2021Q2

REPORT INFORMATION
  Report Type: Report from Study
  Country: KR (occurrence: KR)
  Receive Date: 20210603
  Receipt Date: 20210625
  Transmission Date: 20210717
  Serious: Yes (Other)
  Sender: FDA-Public Use
  Company Number: KR-TAKEDA-2021TUS033972

PATIENT
  Sex: Female
  Weight: 52 kg

DRUGS (17)
  1. PENTASA [Concomitant]
     Active Substance: MESALAMINE
     Dosage: 1000 MILLIGRAM, QD
     Route: 054
     Dates: start: 20180413, end: 20180510
  2. MEZAVANT XL [Concomitant]
     Active Substance: MESALAMINE
     Dosage: UNK, QD
     Route: 048
     Dates: start: 20200326
  3. PENTASA [Concomitant]
     Active Substance: MESALAMINE
     Dosage: UNK, QD
     Route: 048
     Dates: start: 20190822, end: 20200303
  4. VEDOLIZUMAB [Suspect]
     Active Substance: VEDOLIZUMAB
     Indication: COLITIS ULCERATIVE
     Dosage: 300 MILLIGRAM
     Route: 065
     Dates: start: 20210202
  5. PENTASA [Concomitant]
     Active Substance: MESALAMINE
     Dosage: UNK, BID
     Route: 054
     Dates: start: 20180413, end: 20180422
  6. SOLONDO [Concomitant]
     Active Substance: PREDNISOLONE
     Dosage: 15 MILLIGRAM, QD
     Route: 048
     Dates: start: 20180427, end: 20180510
  7. PENTASA [Concomitant]
     Active Substance: MESALAMINE
     Dosage: 1000 MILLIGRAM, QD
     Route: 054
     Dates: start: 20210107, end: 20210127
  8. ASACOL [Concomitant]
     Active Substance: MESALAMINE
     Dosage: 1000 MILLIGRAM, QD
     Route: 054
     Dates: start: 20190523, end: 20190821
  9. PENTASA [Concomitant]
     Active Substance: MESALAMINE
     Dosage: UNK, QD
     Route: 048
     Dates: start: 20180523, end: 20190821
  10. SOLONDO [Concomitant]
     Active Substance: PREDNISOLONE
     Dosage: 20 MILLIGRAM, QD
     Route: 048
     Dates: start: 20180413, end: 20180426
  11. YUHAN?ZID [Concomitant]
     Active Substance: ISONIAZID
     Indication: LATENT TUBERCULOSIS
     Dosage: 400 MILLIGRAM, QD
     Route: 048
     Dates: start: 20210107, end: 20210411
  12. AZAFRINE [Concomitant]
     Active Substance: AZATHIOPRINE
     Dosage: 50 MILLIGRAM, QD
     Route: 048
     Dates: start: 20180511, end: 20190821
  13. AZAFRINE [Concomitant]
     Active Substance: AZATHIOPRINE
     Dosage: 50 MILLIGRAM, QD
     Route: 048
     Dates: start: 20201210, end: 20210127
  14. PENTASA [Concomitant]
     Active Substance: MESALAMINE
     Dosage: UNK, QD
     Route: 048
     Dates: start: 20200304, end: 20200325
  15. AZABIO [Concomitant]
     Dosage: 25 MILLIGRAM, QD
     Route: 048
     Dates: start: 20180427, end: 20180510
  16. RIFAMPIN. [Concomitant]
     Active Substance: RIFAMPIN
     Indication: LATENT TUBERCULOSIS
     Dosage: 600 MILLIGRAM, QD
     Route: 048
     Dates: start: 20210107, end: 20210411
  17. SOLONDO [Concomitant]
     Active Substance: PREDNISOLONE
     Dosage: 10 MILLIGRAM, QD
     Route: 048
     Dates: start: 20180510, end: 20180525

REACTIONS (1)
  - Diverticulitis [Recovered/Resolved]

NARRATIVE: CASE EVENT DATE: 20210507
